FAERS Safety Report 13869958 (Version 2)
Quarter: 2017Q3

REPORT INFORMATION
  Report Type: Report from Study
  Country: ZA (occurrence: ZA)
  Receive Date: 20170815
  Receipt Date: 20170823
  Transmission Date: 20171127
  Serious: Yes (Other)
  Sender: FDA-Public Use
  Company Number: PHHY2017ZA109868

PATIENT
  Age: 30 Year
  Sex: Female

DRUGS (1)
  1. GILENYA [Suspect]
     Active Substance: FINGOLIMOD HYDROCHLORIDE
     Indication: RELAPSING-REMITTING MULTIPLE SCLEROSIS
     Dosage: 0.5 MG, QD
     Route: 048
     Dates: start: 20170724

REACTIONS (11)
  - Yellow skin [Unknown]
  - Blood pressure fluctuation [Unknown]
  - Pruritus [Unknown]
  - Confusional state [Unknown]
  - Chills [Unknown]
  - Hyperhidrosis [Unknown]
  - Bradycardia [Unknown]
  - Concomitant disease aggravated [Unknown]
  - Haematochezia [Unknown]
  - Memory impairment [Unknown]
  - Muscle spasms [Unknown]

NARRATIVE: CASE EVENT DATE: 20170724
